FAERS Safety Report 24389491 (Version 4)
Quarter: 2025Q3

REPORT INFORMATION
  Report Type: Spontaneous
  Country: US (occurrence: US)
  Receive Date: 20241003
  Receipt Date: 20250802
  Transmission Date: 20251020
  Serious: Yes (Hospitalization, Other)
  Sender: ALEXION PHARMACEUTICALS
  Company Number: US-AstraZeneca-CH-00713825A

PATIENT
  Age: 53 Year
  Sex: Female
  Weight: 81 kg

DRUGS (23)
  1. ULTOMIRIS [Suspect]
     Active Substance: RAVULIZUMAB-CWVZ
     Indication: Neuromyelitis optica spectrum disorder
     Dates: start: 20240822, end: 20240822
  2. ULTOMIRIS [Suspect]
     Active Substance: RAVULIZUMAB-CWVZ
  3. SOLIRIS [Suspect]
     Active Substance: ECULIZUMAB
     Indication: Neuromyelitis optica spectrum disorder
     Route: 065
  4. VITAMIN C [Concomitant]
     Active Substance: ASCORBIC ACID
     Dosage: 1 TABLET BY MOUTH, QD
  5. LIORESAL [Concomitant]
     Active Substance: BACLOFEN
     Dosage: 20 MILLIGRAM, TID
  6. BENZONATATE [Concomitant]
     Active Substance: BENZONATATE
  7. BETAHISTINE [Concomitant]
     Active Substance: BETAHISTINE
     Dosage: 16 MILLIGRAM, TID
  8. BIJUVA [Concomitant]
     Active Substance: ESTRADIOL\PROGESTERONE
     Dosage: 1-100 MILLIGRAM CAPSULE, QD
  9. VITAMIN D3 [Concomitant]
     Active Substance: CHOLECALCIFEROL
     Route: 065
  10. CHOLECALCIFEROL [Concomitant]
     Active Substance: CHOLECALCIFEROL
     Dosage: 5000 UNIT TABLET, QD
  11. VITAMIN B12 [Concomitant]
     Active Substance: CYANOCOBALAMIN
     Dosage: 1000 MICROGRAM, QD
  12. FOLIC ACID [Concomitant]
     Active Substance: FOLIC ACID
     Dosage: 400 MICROGRAM, QOD
  13. VALIUM [Concomitant]
     Active Substance: DIAZEPAM
     Indication: Stiff person syndrome
     Dosage: 10 MILLIGRAM, QID
  14. OMEGA 3 [Concomitant]
     Active Substance: CAPSAICIN
     Dosage: 340/1000 MILLIGRAM, QD
  15. ATIVAN [Concomitant]
     Active Substance: LORAZEPAM
     Dosage: 1 MILLIGRAM, QD
  16. Mag [Concomitant]
     Dosage: 535 MILLIGRAM, QD
  17. MEDROL [Concomitant]
     Active Substance: METHYLPREDNISOLONE
  18. MIMVEY [Concomitant]
     Active Substance: ESTRADIOL\NORETHINDRONE ACETATE
     Route: 065
  19. ZOFRAN [Concomitant]
     Active Substance: ONDANSETRON HYDROCHLORIDE
  20. TRILEPTAL [Concomitant]
     Active Substance: OXCARBAZEPINE
     Dosage: 300 MILLIGRAM, BID
  21. SENOKOT [Concomitant]
     Active Substance: SENNOSIDES
     Indication: Constipation
     Dosage: 8.6 MILLIGRAM, BID
  22. UBIQUINOL [Concomitant]
     Active Substance: UBIQUINOL
     Route: 065
  23. RITUXIMAB [Concomitant]
     Active Substance: RITUXIMAB
     Indication: Stiff person syndrome
     Route: 065

REACTIONS (1)
  - Neuromyelitis optica spectrum disorder [Recovered/Resolved]

NARRATIVE: CASE EVENT DATE: 20240906
